FAERS Safety Report 24403255 (Version 1)
Quarter: 2024Q4

REPORT INFORMATION
  Report Type: Spontaneous
  Country: US (occurrence: US)
  Receive Date: 20241007
  Receipt Date: 20241007
  Transmission Date: 20250114
  Serious: No
  Sender: RANBAXY
  Company Number: US-SUN PHARMACEUTICAL INDUSTRIES LTD-2024R1-446723

PATIENT
  Sex: Female

DRUGS (2)
  1. CEQUA [Suspect]
     Active Substance: CYCLOSPORINE
     Indication: Dry eye
     Dosage: UNK
     Route: 047
  2. ZIAC [Concomitant]
     Active Substance: BISOPROLOL FUMARATE\HYDROCHLOROTHIAZIDE
     Indication: Blood pressure measurement
     Dosage: ( 2.5/6.25 MG)
     Route: 065

REACTIONS (4)
  - Product dose omission issue [Unknown]
  - Product use issue [Unknown]
  - Eye irritation [Unknown]
  - Wrong technique in product usage process [Unknown]
